FAERS Safety Report 6399427-0 (Version None)
Quarter: 2009Q4

REPORT INFORMATION
  Report Type: 
  Country: None (occurrence: None)
  Receive Date: 20091014
  Receipt Date: 20091002
  Transmission Date: 20100525
  Serious: Yes (Other)
  Sender: FDA-Public Use
  Company Number: PHHY2009CA42826

PATIENT

DRUGS (1)
  1. EXELON [Suspect]
     Dosage: UNK

REACTIONS (1)
  - SKIN REACTION [None]
